FAERS Safety Report 10936483 (Version 2)
Quarter: 2015Q2

REPORT INFORMATION
  Report Type: Spontaneous
  Country: US (occurrence: US)
  Receive Date: 20150321
  Receipt Date: 20150408
  Transmission Date: 20150821
  Serious: No
  Sender: FDA-Public Use
  Company Number: US-BIOGENIDEC-2015BI036207

PATIENT
  Sex: Female

DRUGS (1)
  1. TECFIDERA [Suspect]
     Active Substance: DIMETHYL FUMARATE
     Indication: MULTIPLE SCLEROSIS

REACTIONS (7)
  - Pruritus [Unknown]
  - Flushing [Recovered/Resolved]
  - Prescribed underdose [Unknown]
  - Feeding disorder [Unknown]
  - Hot flush [Unknown]
  - Vomiting [Unknown]
  - Gastrointestinal disorder [Recovered/Resolved]
